FAERS Safety Report 6051064-3 (Version None)
Quarter: 2009Q1

REPORT INFORMATION
  Report Type: 
  Country: None (occurrence: None)
  Receive Date: 20090121
  Receipt Date: 20061014
  Transmission Date: 20090719
  Serious: Yes (Hospitalization)
  Sender: FDA-Public Use
  Company Number: 1-17098300

PATIENT
  Age: 19 Year
  Sex: Male
  Weight: 54.8852 kg

DRUGS (1)
  1. HYDROCHLOROTHIAZDE TAB [Suspect]
     Dosage: 50 MG, SINGLE DOSE, ORAL
     Route: 048
     Dates: start: 20061014, end: 20061014

REACTIONS (5)
  - BLOOD PRESSURE INCREASED [None]
  - DISORIENTATION [None]
  - TONGUE INJURY [None]
  - TONIC CONVULSION [None]
  - VOMITING [None]
